FAERS Safety Report 5201048-X (Version None)
Quarter: 2007Q1

REPORT INFORMATION
  Report Type: 
  Country: None (occurrence: None)
  Receive Date: 20070108
  Receipt Date: 20070103
  Transmission Date: 20070707
  Serious: Yes (Hospitalization)
  Sender: FDA-Public Use
  Company Number: US-ELI_LILLY_AND_COMPANY-US200609000644

PATIENT
  Age: 40 Year
  Sex: Male
  Weight: 143.31 kg

DRUGS (7)
  1. ZYPREXA [Suspect]
     Dosage: 2.5 MG, UNK
     Dates: start: 20000816
  2. ZYPREXA [Suspect]
     Dosage: 20 MG, UNK
     Dates: end: 20020613
  3. QUETIAPINE FUMARATE [Concomitant]
     Dates: start: 20020101, end: 20060101
  4. RISPERIDONE [Concomitant]
     Dates: start: 20010101, end: 20020101
  5. ZIPRASIDONE HCL [Concomitant]
     Dates: start: 20010101
  6. BUPROPION HCL [Concomitant]
     Dates: start: 20000101, end: 20060101
  7. PAROXETINE HCL [Concomitant]
     Dates: start: 20000101, end: 20020101

REACTIONS (6)
  - CARDIOVASCULAR DISORDER [None]
  - DIABETES MELLITUS [None]
  - HYPERTENSION [None]
  - METABOLIC DISORDER [None]
  - MYOCARDIAL INFARCTION [None]
  - VISION BLURRED [None]
